FAERS Safety Report 12267736 (Version 3)
Quarter: 2017Q1

REPORT INFORMATION
  Report Type: Report from Study
  Country: CO (occurrence: CO)
  Receive Date: 20160414
  Receipt Date: 20170201
  Transmission Date: 20170428
  Serious: Yes (Hospitalization, Other)
  Sender: FDA-Public Use
  Company Number: PHHY2016CO050017

PATIENT
  Age: 89 Year
  Sex: Male
  Weight: 57 kg

DRUGS (2)
  1. SANDOSTATIN LAR DEPOT [Suspect]
     Active Substance: OCTREOTIDE ACETATE
     Indication: PANCREATIC NEUROENDOCRINE TUMOUR
     Dosage: 30 MG, QMO (ONCE A MONTH)
     Route: 030
     Dates: start: 20130502
  2. SANDOSTATIN LAR DEPOT [Suspect]
     Active Substance: OCTREOTIDE ACETATE
     Dosage: UNK
     Route: 048
     Dates: start: 20140502, end: 201611

REACTIONS (13)
  - Malaise [Unknown]
  - Blood cholesterol abnormal [Unknown]
  - Feeling hot [Unknown]
  - Hypertension [Unknown]
  - Pain [Unknown]
  - Cerebral thrombosis [Unknown]
  - Syncope [Unknown]
  - Gastric ulcer [Unknown]
  - Dehydration [Unknown]
  - Diarrhoea [Unknown]
  - Product use issue [Unknown]
  - Cerebral infarction [Unknown]
  - Seizure [Unknown]

NARRATIVE: CASE EVENT DATE: 2013
